FAERS Safety Report 9652504 (Version 1)
Quarter: 2013Q4

REPORT INFORMATION
  Report Type: Spontaneous
  Country: US (occurrence: US)
  Receive Date: 20131029
  Receipt Date: 20131029
  Transmission Date: 20140711
  Serious: No
  Sender: FDA-Public Use
  Company Number: US-PFIZER INC-2013305342

PATIENT
  Sex: Female

DRUGS (1)
  1. ADVIL [Suspect]
     Indication: PAIN IN EXTREMITY
     Dosage: UNK, THREE TIMES A DAY
     Route: 048
     Dates: start: 2010, end: 2010

REACTIONS (1)
  - Drug ineffective [Unknown]
